FAERS Safety Report 8140451-5 (Version None)
Quarter: 2012Q1

REPORT INFORMATION
  Report Type: 
  Country: None (occurrence: None)
  Receive Date: 20120216
  Receipt Date: 20120213
  Transmission Date: 20120608
  Serious: Yes (Other)
  Sender: FDA-Public Use
  Company Number: US-PFIZER INC-2012038812

PATIENT
  Sex: Male
  Weight: 81.6 kg

DRUGS (1)
  1. LYRICA [Suspect]
     Indication: DIABETIC NEUROPATHY
     Dosage: TWO TIMES A DAY
     Route: 048
     Dates: start: 20070101

REACTIONS (2)
  - GLAUCOMA [None]
  - EYE PAIN [None]
